FAERS Safety Report 5763205-3 (Version None)
Quarter: 2008Q2

REPORT INFORMATION
  Report Type: 
  Country: None (occurrence: None)
  Receive Date: 20080609
  Receipt Date: 20080529
  Transmission Date: 20081010
  Serious: Yes (Hospitalization)
  Sender: FDA-Public Use
  Company Number: FR-ELI_LILLY_AND_COMPANY-FR200805005801

PATIENT
  Sex: Female

DRUGS (2)
  1. CYMBALTA [Suspect]
     Indication: DEPRESSION
     Dosage: 1 D/F, DAILY (1/D)
     Route: 048
     Dates: start: 20080331, end: 20080403
  2. PROZAC [Suspect]
     Indication: DEPRESSION
     Dosage: 20 MG, DAILY (1/D)
     Route: 048
     Dates: start: 20080404

REACTIONS (2)
  - FACE OEDEMA [None]
  - URTICARIA [None]
